FAERS Safety Report 10165009 (Version 2)
Quarter: 2014Q2

REPORT INFORMATION
  Report Type: Spontaneous
  Country: US (occurrence: US)
  Receive Date: 20140510
  Receipt Date: 20140510
  Transmission Date: 20141212
  Serious: No
  Sender: FDA-Public Use
  Company Number: US-BRISTOL-MYERS SQUIBB COMPANY-20219655

PATIENT
  Age: 62 Year
  Sex: Male

DRUGS (5)
  1. BYDUREON [Suspect]
     Indication: TYPE 2 DIABETES MELLITUS
     Route: 058
     Dates: start: 20130604
  2. MIRALAX [Concomitant]
  3. ASA [Concomitant]
  4. VITAMIN C [Concomitant]
  5. VITAMIN [Concomitant]

REACTIONS (2)
  - Eructation [Unknown]
  - Arthralgia [Unknown]
